FAERS Safety Report 8290711-2 (Version None)
Quarter: 2012Q2

REPORT INFORMATION
  Report Type: 
  Country: None (occurrence: None)
  Receive Date: 20120417
  Receipt Date: 20110627
  Transmission Date: 20120825
  Serious: No
  Sender: FDA-Public Use
  Company Number: US-ASTRAZENECA-2010SE27455

PATIENT
  Age: 67 Year
  Sex: Male
  Weight: 86.2 kg

DRUGS (10)
  1. SEROQUEL [Suspect]
     Indication: MENTAL DISORDER
     Route: 048
  2. SEROQUEL [Suspect]
     Route: 048
  3. TIMOLOL MALEATE [Concomitant]
  4. FENOFIBRATE [Concomitant]
  5. DIAZEPAM [Concomitant]
  6. OXYCODONE HCL [Concomitant]
  7. NEXIUM [Suspect]
     Indication: BARRETT'S OESOPHAGUS
     Route: 048
  8. ASPIRIN [Concomitant]
  9. MORPHINE [Concomitant]
  10. MIRALAX [Concomitant]

REACTIONS (10)
  - ANXIETY [None]
  - CONDITION AGGRAVATED [None]
  - LARYNGITIS [None]
  - MULTIPLE ALLERGIES [None]
  - MALAISE [None]
  - FEELING ABNORMAL [None]
  - DRUG DOSE OMISSION [None]
  - NASOPHARYNGITIS [None]
  - DEMENTIA [None]
  - WRONG DRUG ADMINISTERED [None]
